FAERS Safety Report 15774922 (Version 4)
Quarter: 2019Q2

REPORT INFORMATION
  Report Type: Report from Study
  Country: AU (occurrence: AU)
  Receive Date: 20181230
  Receipt Date: 20190530
  Transmission Date: 20190711
  Serious: Yes (Death, Hospitalization)
  Sender: FDA-Public Use
  Company Number: AU-ROCHE-1742705

PATIENT
  Age: 80 Year
  Sex: Female
  Weight: 57.4 kg

DRUGS (40)
  1. OBINUTUZUMAB. [Suspect]
     Active Substance: OBINUTUZUMAB
     Dosage: TOTAL VOLUME WAS 250 ML AND INFUSION RATE WAS 100 MG/HR
     Route: 042
     Dates: start: 20160622
  2. OBINUTUZUMAB. [Suspect]
     Active Substance: OBINUTUZUMAB
     Dosage: TOTAL VOLUME WAS 250 ML AND INFUSION RATE WAS 100 MG/HR
     Route: 042
     Dates: start: 20160720
  3. OBINUTUZUMAB. [Suspect]
     Active Substance: OBINUTUZUMAB
     Dosage: TOTAL VOLUME WAS 250 ML AND INFUSION RATE WAS 100 MG/HR
     Route: 042
     Dates: start: 20160914
  4. ZANUBRUTINIB [Suspect]
     Active Substance: ZANUBRUTINIB
     Route: 048
     Dates: start: 20160622
  5. ZANUBRUTINIB [Suspect]
     Active Substance: ZANUBRUTINIB
     Route: 048
     Dates: start: 20161012
  6. CALTRATE [CALCIUM CARBONATE;COLECALCIFEROL] [Concomitant]
     Indication: PROPHYLAXIS
     Route: 048
     Dates: start: 20160419, end: 20160705
  7. ZANUBRUTINIB [Suspect]
     Active Substance: ZANUBRUTINIB
     Indication: B-CELL LYMPHOMA
     Dosage: LAST DOSE RECEIVED ON 06/DEC/2016
     Route: 048
     Dates: start: 20160426
  8. CALCIUM CARBONATE. [Concomitant]
     Active Substance: CALCIUM CARBONATE
     Route: 048
     Dates: start: 20160705
  9. OBINUTUZUMAB. [Suspect]
     Active Substance: OBINUTUZUMAB
     Indication: B-CELL LYMPHOMA
     Dosage: TOTAL VOLUME WAS 100 ML AND INFUSION RATE WAS 25 MG/HR?LAST DOSE RECEIVED ON 14 SEP 2016
     Route: 042
     Dates: start: 20160426
  10. OBINUTUZUMAB. [Suspect]
     Active Substance: OBINUTUZUMAB
     Dosage: TOTAL VOLUME WAS 250 ML AND INFUSION RATE WAS 100 MG/HR
     Route: 042
     Dates: start: 20160817
  11. ZANUBRUTINIB [Suspect]
     Active Substance: ZANUBRUTINIB
     Route: 048
     Dates: start: 20160524
  12. BENDAMUSTINA [Suspect]
     Active Substance: BENDAMUSTINE
     Indication: PRODUCT USED FOR UNKNOWN INDICATION
     Route: 042
     Dates: start: 20161208, end: 20161209
  13. CYTARABIN [Suspect]
     Active Substance: CYTARABINE
     Indication: PRODUCT USED FOR UNKNOWN INDICATION
     Route: 042
     Dates: start: 20161208, end: 20161210
  14. FUROSEMIDE. [Concomitant]
     Active Substance: FUROSEMIDE
     Route: 042
     Dates: start: 20160426
  15. DEXAMETHASONE. [Concomitant]
     Active Substance: DEXAMETHASONE
     Route: 048
     Dates: start: 20160414, end: 20160417
  16. ALLOPURINOL. [Concomitant]
     Active Substance: ALLOPURINOL
     Route: 048
     Dates: start: 20160426
  17. TAZOCIN [Concomitant]
     Active Substance: PIPERACILLIN SODIUM\TAZOBACTAM SODIUM
     Route: 048
     Dates: start: 20160430
  18. OBINUTUZUMAB. [Suspect]
     Active Substance: OBINUTUZUMAB
     Dosage: TOTAL VOLUME WAS 250 ML AND INFUSION RATE WAS 50 MG/HR
     Route: 042
     Dates: start: 20160427
  19. OBINUTUZUMAB. [Suspect]
     Active Substance: OBINUTUZUMAB
     Dosage: TOTAL VOLUME WAS 250 ML AND INFUSION RATE WAS 100 MG/HR
     Route: 042
     Dates: start: 20160527
  20. PANTOPRAZOLE [Concomitant]
     Active Substance: PANTOPRAZOLE
     Route: 065
     Dates: start: 20160419
  21. CALCITRIOL. [Concomitant]
     Active Substance: CALCITRIOL
  22. OBINUTUZUMAB. [Suspect]
     Active Substance: OBINUTUZUMAB
     Dosage: TOTAL VOLUME WAS 250 ML AND INFUSION RATE WAS 100 MG/HR
     Route: 042
     Dates: start: 20160503
  23. ZANUBRUTINIB [Suspect]
     Active Substance: ZANUBRUTINIB
     Route: 048
     Dates: start: 20160720
  24. ZANUBRUTINIB [Suspect]
     Active Substance: ZANUBRUTINIB
     Route: 048
     Dates: start: 20160914
  25. METOCLOPRAMIDE. [Concomitant]
     Active Substance: METOCLOPRAMIDE
     Dosage: PRN
     Route: 048
     Dates: start: 20160426
  26. VALACICLOVIR [Concomitant]
     Active Substance: VALACYCLOVIR HYDROCHLORIDE
     Route: 048
     Dates: start: 20160426
  27. ONDANSETRON [Concomitant]
     Active Substance: ONDANSETRON
     Dosage: DAY 1, 2, 8, 15 OF C1 THEN EVERY 28 DAYS
     Route: 048
     Dates: start: 20160426, end: 20160914
  28. OBINUTUZUMAB. [Suspect]
     Active Substance: OBINUTUZUMAB
     Dosage: TOTAL VOLUME WAS 250 ML AND INFUSION RATE WAS 100 MG/HR
     Route: 042
     Dates: start: 20160510
  29. ZANUBRUTINIB [Suspect]
     Active Substance: ZANUBRUTINIB
     Route: 048
     Dates: start: 20160817
  30. ZANUBRUTINIB [Suspect]
     Active Substance: ZANUBRUTINIB
     Route: 048
     Dates: start: 20161109
  31. FUROSEMIDE. [Concomitant]
     Active Substance: FUROSEMIDE
     Route: 042
     Dates: start: 20160413, end: 20160419
  32. CLEXANE [Concomitant]
     Active Substance: ENOXAPARIN SODIUM
     Route: 065
     Dates: start: 20160419
  33. PARACETAMOL [Concomitant]
     Active Substance: ACETAMINOPHEN
     Indication: PROPHYLAXIS
     Dosage: PRN, DAY 1, 2, 8, 15 OF C1 THEN EVERY 28 DAYS
     Route: 048
     Dates: start: 20160426, end: 20160914
  34. CALCIUM CARBONATE. [Concomitant]
     Active Substance: CALCIUM CARBONATE
     Indication: PROPHYLAXIS
     Route: 048
     Dates: start: 20160419, end: 20160705
  35. OBINUTUZUMAB. [Suspect]
     Active Substance: OBINUTUZUMAB
     Dosage: TOTAL VOLUME WAS 250 ML AND INFUSION RATE WAS 100 MG/HR
     Route: 042
     Dates: start: 20160524
  36. RITUXIMAB. [Suspect]
     Active Substance: RITUXIMAB
     Indication: PRODUCT USED FOR UNKNOWN INDICATION
     Route: 065
  37. METOPROLOL. [Concomitant]
     Active Substance: METOPROLOL
     Route: 048
     Dates: start: 20160419
  38. SULFAMETHOXAZOLE/TRIMETHOPRIM [Concomitant]
     Active Substance: SULFAMETHOXAZOLE\TRIMETHOPRIM
     Indication: PROPHYLAXIS
     Dosage: 1 TABLET
     Route: 065
     Dates: start: 20160505
  39. ONDANSETRON [Concomitant]
     Active Substance: ONDANSETRON
     Dosage: PRN
     Route: 048
     Dates: start: 20161122
  40. CALTRATE [CALCIUM CARBONATE;COLECALCIFEROL] [Concomitant]
     Route: 048
     Dates: start: 20160705

REACTIONS (4)
  - Tumour lysis syndrome [Recovered/Resolved with Sequelae]
  - Tumour lysis syndrome [Recovered/Resolved]
  - Pleural effusion [Recovered/Resolved]
  - Renal impairment [Fatal]

NARRATIVE: CASE EVENT DATE: 20161215
